FAERS Safety Report 15952750 (Version 1)
Quarter: 2019Q1

REPORT INFORMATION
  Report Type: Spontaneous
  Country: US (occurrence: US)
  Receive Date: 20190211
  Receipt Date: 20190211
  Transmission Date: 20190417
  Serious: Yes (Hospitalization, Other)
  Sender: FDA-Public Use
  Company Number: US-009507513-1902USA003154

PATIENT
  Age: 62 Year
  Sex: Male
  Weight: 137 kg

DRUGS (3)
  1. PRINIVIL [Suspect]
     Active Substance: LISINOPRIL
     Dosage: UNK
     Route: 048
  2. GLASDEGIB [Suspect]
     Active Substance: GLASDEGIB
     Dosage: 100 MG, 1X/DAY (ONCE DAILY)
     Route: 048
     Dates: start: 20181106
  3. VIDAZA [Suspect]
     Active Substance: AZACITIDINE
     Dosage: 140 MG, FOR 7 DAYS EVERY 28 DAYS
     Route: 058
     Dates: start: 20181106

REACTIONS (4)
  - Sepsis [Not Recovered/Not Resolved]
  - Blood pressure decreased [Recovering/Resolving]
  - Packed red blood cell transfusion [Unknown]
  - Blood lactic acid increased [Unknown]

NARRATIVE: CASE EVENT DATE: 20190125
